FAERS Safety Report 6197467-8 (Version None)
Quarter: 2009Q2

REPORT INFORMATION
  Report Type: 
  Country: None (occurrence: None)
  Receive Date: 20090521
  Receipt Date: 20090518
  Transmission Date: 20091009
  Serious: Yes (Life-Threatening, Hospitalization)
  Sender: FDA-Public Use
  Company Number: ES-BAYER-200920590GPV

PATIENT
  Age: 56 Year
  Sex: Male
  Weight: 90 kg

DRUGS (10)
  1. NEXAVAR [Suspect]
     Indication: HEPATIC NEOPLASM MALIGNANT RECURRENT
     Route: 048
     Dates: start: 20080428, end: 20090322
  2. EVEROLIMUS [Suspect]
     Indication: HEPATIC NEOPLASM MALIGNANT RECURRENT
     Route: 065
     Dates: start: 20050101
  3. ADIRO [Concomitant]
     Indication: ANTICOAGULANT THERAPY
     Route: 048
  4. TRIALMIN [Concomitant]
     Indication: HYPERTRIGLYCERIDAEMIA
     Route: 048
  5. EUGLUCON [Concomitant]
     Indication: DRUG USE FOR UNKNOWN INDICATION
     Route: 065
  6. LESCOL [Concomitant]
     Indication: DRUG USE FOR UNKNOWN INDICATION
     Route: 065
  7. ATACAND HCT [Concomitant]
     Indication: HYPERTENSION
     Route: 065
  8. RESINCALCIO [Concomitant]
     Indication: HYPERKALAEMIA
     Route: 065
  9. NEURONTIN [Concomitant]
     Indication: DIABETIC NEUROPATHY
     Route: 065
  10. INSULIN [Concomitant]
     Indication: DIABETES MELLITUS
     Route: 065

REACTIONS (2)
  - CARDIAC FAILURE [None]
  - PULMONARY OEDEMA [None]
